FAERS Safety Report 6960780-8 (Version None)
Quarter: 2010Q3

REPORT INFORMATION
  Report Type: 
  Country: None (occurrence: None)
  Receive Date: 20100823
  Receipt Date: 20100707
  Transmission Date: 20110219
  Serious: No
  Sender: FDA-Public Use
  Company Number: 015224

PATIENT
  Sex: Female
  Weight: 43.9 kg

DRUGS (4)
  1. CIMZIA [Suspect]
     Indication: CROHN'S DISEASE
     Dosage: (EVERY MONTH SUBCUTANEOUS)
     Route: 058
     Dates: start: 20100330
  2. DESVENLAFAXIN [Concomitant]
  3. DESIPRAMINE HCL [Concomitant]
  4. VITAMIN TAB [Concomitant]

REACTIONS (3)
  - DIARRHOEA [None]
  - DRUG INEFFECTIVE [None]
  - WEIGHT DECREASED [None]
